FAERS Safety Report 7330141-0 (Version None)
Quarter: 2011Q1

REPORT INFORMATION
  Report Type: 
  Country: None (occurrence: None)
  Receive Date: 20110303
  Receipt Date: 20110301
  Transmission Date: 20110831
  Serious: Yes (Hospitalization, Other)
  Sender: FDA-Public Use
  Company Number: US-ABBOTT-11P-163-0701982-00

PATIENT
  Age: 57 Year
  Sex: Female

DRUGS (13)
  1. PREDNISONE [Concomitant]
     Indication: RHEUMATOID ARTHRITIS
  2. PEPCID OTC [Concomitant]
     Indication: GASTROOESOPHAGEAL REFLUX DISEASE
  3. KLOR-CON [Concomitant]
     Indication: MINERAL SUPPLEMENTATION
  4. LEFLUNOMIDE [Concomitant]
     Indication: RHEUMATOID ARTHRITIS
  5. HUMIRA [Suspect]
     Indication: RHEUMATOID ARTHRITIS
     Dates: start: 20070501, end: 20100801
  6. OMEPRAZOLE [Concomitant]
     Indication: GASTROOESOPHAGEAL REFLUX DISEASE
  7. PRILOSEC [Concomitant]
     Indication: GASTROOESOPHAGEAL REFLUX DISEASE
  8. SINGULAIR [Concomitant]
     Indication: HYPERSENSITIVITY
  9. LASIX [Concomitant]
     Indication: OEDEMA
  10. LIPITOR [Concomitant]
     Indication: BLOOD CHOLESTEROL INCREASED
  11. LEVOTHROID [Concomitant]
     Indication: HYPOTHYROIDISM
  12. LISINOPRIL [Concomitant]
     Indication: HYPERTENSION
  13. SPIRONOLACTONE [Concomitant]
     Indication: FLUID RETENTION

REACTIONS (2)
  - CORONARY ARTERY OCCLUSION [None]
  - ARRHYTHMIA [None]
